FAERS Safety Report 9920375 (Version 1)
Quarter: 2014Q1

REPORT INFORMATION
  Report Type: Spontaneous
  Country: GB (occurrence: GB)
  Receive Date: 20140224
  Receipt Date: 20140224
  Transmission Date: 20141002
  Serious: Yes (Life-Threatening)
  Sender: FDA-Public Use
  Company Number: PHHY2014GB021669

PATIENT
  Age: 81 Year
  Sex: Male
  Weight: 76.15 kg

DRUGS (7)
  1. AMOXICILLIN [Suspect]
     Indication: URINARY TRACT INFECTION
     Dosage: 500 MG, TID
     Route: 048
     Dates: start: 20131214, end: 20131216
  2. LANSOPRAZOLE [Suspect]
     Dosage: 30 MG, QD IN THE MORNING.
     Route: 048
     Dates: end: 20131228
  3. LACTULOSE [Suspect]
     Dosage: 15 ML, BID
     Route: 048
     Dates: end: 20131228
  4. FERROUS SULFATE [Suspect]
     Dosage: 200 MG, TID
     Route: 048
     Dates: end: 20131228
  5. SENNA [Suspect]
     Dosage: 15 MG, QD AT NIGHT.
     Route: 048
     Dates: end: 20131223
  6. TAZOCIN [Suspect]
     Indication: PNEUMONIA
     Dosage: 4.5 G, UNK
     Route: 042
     Dates: start: 20131228, end: 20131231
  7. TAZOCIN [Suspect]
     Route: 042
     Dates: start: 20131216, end: 20131221

REACTIONS (1)
  - Clostridium difficile colitis [Not Recovered/Not Resolved]
